FAERS Safety Report 5383637-5 (Version None)
Quarter: 2007Q3

REPORT INFORMATION
  Report Type: 
  Country: None (occurrence: None)
  Receive Date: 20070706
  Receipt Date: 20070625
  Transmission Date: 20080115
  Serious: Yes (Hospitalization)
  Sender: FDA-Public Use
  Company Number: 2007BI008917

PATIENT
  Age: 17 Year
  Sex: Female

DRUGS (3)
  1. AVONEX [Suspect]
     Indication: MULTIPLE SCLEROSIS
     Dosage: 30 UG; QW; IM
     Route: 030
     Dates: start: 20061106
  2. TRAMADOL HCL [Concomitant]
  3. NITROFLURANTOIN [Concomitant]

REACTIONS (8)
  - ABDOMINAL PAIN LOWER [None]
  - ANOREXIA [None]
  - BLOOD URINE PRESENT [None]
  - BURNING SENSATION [None]
  - HAEMATOMA [None]
  - PAIN IN EXTREMITY [None]
  - ROAD TRAFFIC ACCIDENT [None]
  - SCAR [None]
